FAERS Safety Report 6248868-0 (Version None)
Quarter: 2009Q2

REPORT INFORMATION
  Report Type: 
  Country: None (occurrence: None)
  Receive Date: 20090629
  Receipt Date: 20090617
  Transmission Date: 20091009
  Serious: Yes (Other)
  Sender: FDA-Public Use
  Company Number: PHEH2009US06384

PATIENT
  Sex: Male
  Weight: 112.2 kg

DRUGS (2)
  1. EXFORGE [Suspect]
     Dosage: 160/5 MG, ONCE A DAY
     Dates: start: 20090615, end: 20090616
  2. METOPROLOL TARTRATE [Suspect]
     Dosage: 25 UNK, BID

REACTIONS (3)
  - OEDEMA PERIPHERAL [None]
  - SWELLING FACE [None]
  - TESTICULAR SWELLING [None]
